FAERS Safety Report 7418255-8 (Version None)
Quarter: 2011Q2

REPORT INFORMATION
  Report Type: 
  Country: None (occurrence: None)
  Receive Date: 20110415
  Receipt Date: 20110411
  Transmission Date: 20111010
  Serious: Yes (Other)
  Sender: FDA-Public Use
  Company Number: US-BAYER-2011-032006

PATIENT
  Age: 28 Year
  Sex: Female

DRUGS (2)
  1. YAZ [Suspect]
     Dosage: UNK
     Dates: start: 20090501, end: 20090701
  2. YASMIN [Suspect]

REACTIONS (5)
  - HAEMORRHAGIC STROKE [None]
  - EMOTIONAL DISTRESS [None]
  - PAIN [None]
  - BRAIN OEDEMA [None]
  - INJURY [None]
